FAERS Safety Report 20906387 (Version 1)
Quarter: 2022Q2

REPORT INFORMATION
  Report Type: Spontaneous
  Country: US (occurrence: US)
  Receive Date: 20220602
  Receipt Date: 20220602
  Transmission Date: 20220721
  Serious: Yes (Other)
  Sender: FDA-Public Use
  Company Number: US-SLATE RUN PHARMACEUTICALS-22US001112

PATIENT

DRUGS (3)
  1. VANCOMYCIN HYDROCHLORIDE [Suspect]
     Active Substance: VANCOMYCIN HYDROCHLORIDE
     Indication: Stomatococcal infection
     Dosage: UNK
  2. CEFEPIME [Suspect]
     Active Substance: CEFEPIME HYDROCHLORIDE
     Indication: Stomatococcal infection
     Dosage: UNK
  3. UNSPECIFIED INGREDIENT [Concomitant]
     Active Substance: UNSPECIFIED INGREDIENT
     Indication: Acute lymphocytic leukaemia

REACTIONS (9)
  - Multisystem inflammatory syndrome in children [Recovered/Resolved]
  - Septic shock [Unknown]
  - COVID-19 [Recovered/Resolved]
  - Coronary artery dilatation [Recovering/Resolving]
  - Pericardial effusion [Recovered/Resolved]
  - Tachycardia [Recovering/Resolving]
  - Drug ineffective for unapproved indication [Recovered/Resolved]
  - Thrombocytopenia [Unknown]
  - Off label use [Unknown]

NARRATIVE: CASE EVENT DATE: 20200101
